FAERS Safety Report 22363573 (Version 1)
Quarter: 2023Q2

REPORT INFORMATION
  Report Type: Report from Study
  Country: ZA (occurrence: ZA)
  Receive Date: 20230525
  Receipt Date: 20230525
  Transmission Date: 20230722
  Serious: Yes (Hospitalization)
  Sender: FDA-Public Use
  Company Number: ZA-AMGEN-ZAFSL2023088045

PATIENT
  Age: 50 Year
  Sex: Female

DRUGS (1)
  1. ADALIMUMAB [Suspect]
     Active Substance: ADALIMUMAB
     Indication: Rheumatoid arthritis
     Dosage: 40 MILLIGRAM, Q2WK
     Route: 058
     Dates: start: 20211116

REACTIONS (1)
  - Rheumatoid arthritis [Not Recovered/Not Resolved]
